FAERS Safety Report 7212025-1 (Version None)
Quarter: 2011Q1

REPORT INFORMATION
  Report Type: 
  Country: None (occurrence: None)
  Receive Date: 20110106
  Receipt Date: 20101118
  Transmission Date: 20110831
  Serious: Yes (Other)
  Sender: FDA-Public Use
  Company Number: IT-SHIRE-SPV1-2010-02015

PATIENT

DRUGS (1)
  1. XAGRID [Suspect]
     Indication: ESSENTIAL THROMBOCYTHAEMIA

REACTIONS (9)
  - ARRHYTHMIA [None]
  - HYPERTENSION [None]
  - ANGINA PECTORIS [None]
  - PALPITATIONS [None]
  - PERICARDITIS [None]
  - PREGNANCY [None]
  - DRUG INEFFECTIVE [None]
  - CARDIAC FAILURE CONGESTIVE [None]
  - ACUTE MYOCARDIAL INFARCTION [None]
